FAERS Safety Report 22532877 (Version 1)
Quarter: 2023Q2

REPORT INFORMATION
  Report Type: Report from Study
  Country: US (occurrence: US)
  Receive Date: 20230607
  Receipt Date: 20230607
  Transmission Date: 20230722
  Serious: Yes (Hospitalization, Other)
  Sender: FDA-Public Use
  Company Number: US-002147023-PHHY2019US081993

PATIENT
  Age: 77 Year
  Sex: Female
  Weight: 94.3 kg

DRUGS (9)
  1. VOLTAREN [Suspect]
     Active Substance: DICLOFENAC SODIUM
     Indication: Osteoarthritis
     Dosage: 2 DF, QD
     Route: 048
     Dates: start: 20160911, end: 20170806
  2. ALFALFA [Concomitant]
     Active Substance: ALFALFA
     Indication: Product used for unknown indication
     Dosage: 1 DF, QD
     Route: 048
     Dates: start: 2015
  3. FUROSEMIDE [Concomitant]
     Active Substance: FUROSEMIDE
     Indication: Diuretic therapy
     Dosage: 40 MG, QD
     Route: 048
     Dates: start: 2015
  4. STOOL SOFTENER (DOCUSATE) [Concomitant]
     Active Substance: DOCUSATE
     Indication: Constipation
     Dosage: 1 DF, QD
     Route: 048
     Dates: start: 2016
  5. TRAZODONE [Concomitant]
     Active Substance: TRAZODONE HYDROCHLORIDE
     Indication: Depression
     Dosage: 50 MG, BID
     Route: 065
     Dates: start: 2015
  6. CITALOPRAM [Concomitant]
     Active Substance: CITALOPRAM HYDROBROMIDE
     Indication: Depression
     Dosage: 40 MG, QD
     Route: 065
     Dates: start: 2013
  7. ATORVASTATIN [Concomitant]
     Active Substance: ATORVASTATIN
     Indication: Hyperlipidaemia
     Dosage: 20 MG, QD
     Route: 065
     Dates: start: 2013
  8. ASPIRIN [Concomitant]
     Active Substance: ASPIRIN
     Indication: Cardiac disorder
     Dosage: 117.5 MG, QD
     Route: 065
     Dates: start: 2016
  9. ACETAMINOPHEN\HYDROCODONE [Concomitant]
     Active Substance: ACETAMINOPHEN\HYDROCODONE
     Indication: Osteoarthritis
     Dosage: 325 MG, UNK
     Route: 065
     Dates: start: 20170806

REACTIONS (6)
  - Musculoskeletal pain [Recovered/Resolved]
  - Condition aggravated [Recovered/Resolved]
  - Rotator cuff syndrome [Recovered/Resolved]
  - Rapidly progressive osteoarthritis [Recovered/Resolved]
  - Condition aggravated [Recovered/Resolved]
  - Osteonecrosis [Recovering/Resolving]

NARRATIVE: CASE EVENT DATE: 20170518
